FAERS Safety Report 22313018 (Version 1)
Quarter: 2023Q2

REPORT INFORMATION
  Report Type: Report from Study
  Country: US (occurrence: US)
  Receive Date: 20230512
  Receipt Date: 20230512
  Transmission Date: 20230722
  Serious: Yes (Other)
  Sender: FDA-Public Use
  Company Number: US-ABBVIE-4763920

PATIENT
  Age: 50 Year
  Sex: Female

DRUGS (2)
  1. ORILISSA [Suspect]
     Active Substance: ELAGOLIX SODIUM
     Indication: Product used for unknown indication
     Route: 048
     Dates: start: 2020
  2. ORILISSA [Suspect]
     Active Substance: ELAGOLIX SODIUM
     Indication: Product used for unknown indication
     Route: 048
     Dates: start: 20230507

REACTIONS (5)
  - Gallbladder operation [Unknown]
  - Gait disturbance [Unknown]
  - Insomnia [Unknown]
  - Hypophagia [Unknown]
  - Premenstrual pain [Unknown]

NARRATIVE: CASE EVENT DATE: 20230507
